FAERS Safety Report 7174002-9 (Version None)
Quarter: 2010Q4

REPORT INFORMATION
  Report Type: 
  Country: None (occurrence: None)
  Receive Date: 20101219
  Receipt Date: 20100316
  Transmission Date: 20110411
  Serious: No
  Sender: FDA-Public Use
  Company Number: US-AMGEN-KDL393693

PATIENT

DRUGS (11)
  1. ENBREL [Suspect]
     Indication: RHEUMATOID ARTHRITIS
     Dosage: 50 MG, QWK
     Route: 058
     Dates: start: 20000301
  2. IBANDRONATE SODIUM [Concomitant]
     Dosage: 150 MG, QMO
  3. CALCIUM [Concomitant]
     Dosage: 500 MG, BID
  4. ERGOCALCIFEROL [Concomitant]
     Dosage: 1000 IU, QD
  5. LEVOTHYROXINE SODIUM [Concomitant]
  6. BUPROPION [Concomitant]
  7. FISH OIL [Concomitant]
  8. LORATADINE [Concomitant]
  9. METHOTREXATE [Concomitant]
     Dosage: 7.5 MG, QWK
     Route: 048
  10. FOLIC ACID [Concomitant]
     Dosage: 1 MG, QD
  11. PREDNISONE [Concomitant]

REACTIONS (13)
  - ALANINE AMINOTRANSFERASE INCREASED [None]
  - ARTHRALGIA [None]
  - DRY EYE [None]
  - JOINT RANGE OF MOTION DECREASED [None]
  - JOINT SWELLING [None]
  - JOINT WARMTH [None]
  - LOCALISED INFECTION [None]
  - OEDEMA PERIPHERAL [None]
  - OSTEOPENIA [None]
  - PARAESTHESIA [None]
  - RHEUMATOID ARTHRITIS [None]
  - SKIN HYPERPIGMENTATION [None]
  - SLEEP DISORDER [None]
